FAERS Safety Report 14524458 (Version 1)
Quarter: 2018Q1

REPORT INFORMATION
  Report Type: Spontaneous
  Country: US (occurrence: US)
  Receive Date: 20180213
  Receipt Date: 20180213
  Transmission Date: 20180509
  Serious: No
  Sender: FDA-Public Use
  Company Number: US-PFIZER INC-2018062660

PATIENT
  Age: 4 Year
  Sex: Female
  Weight: 15 kg

DRUGS (1)
  1. GENOTROPIN MQ [Suspect]
     Active Substance: SOMATROPIN
     Dosage: 0.6 MG, DAILY(0.28MG/KG/WEEK)
     Route: 058
     Dates: start: 201505

REACTIONS (1)
  - Bilateral breast buds [Recovered/Resolved]

NARRATIVE: CASE EVENT DATE: 2015
